FAERS Safety Report 19126234 (Version 3)
Quarter: 2021Q3

REPORT INFORMATION
  Report Type: Spontaneous
  Country: US (occurrence: US)
  Receive Date: 20210412
  Receipt Date: 20210929
  Transmission Date: 20211014
  Serious: Yes (Disabling, Other)
  Sender: FDA-Public Use
  Company Number: US-PFIZER INC-2020159377

PATIENT
  Age: 79 Year
  Sex: Female

DRUGS (1)
  1. EFFEXOR XR [Suspect]
     Active Substance: VENLAFAXINE HYDROCHLORIDE
     Indication: ANXIETY
     Dosage: 75 MG, 2X/DAY

REACTIONS (11)
  - Gait disturbance [Unknown]
  - Gastrooesophageal reflux disease [Unknown]
  - Osteoporosis [Unknown]
  - Fall [Unknown]
  - Sjogren^s syndrome [Unknown]
  - Illness [Unknown]
  - Breast cancer stage III [Unknown]
  - Autoimmune disorder [Unknown]
  - Osteoarthritis [Unknown]
  - Rheumatoid arthritis [Unknown]
  - Systemic lupus erythematosus [Unknown]
